FAERS Safety Report 7236661-1 (Version None)
Quarter: 2011Q1

REPORT INFORMATION
  Report Type: 
  Country: None (occurrence: None)
  Receive Date: 20110120
  Receipt Date: 20110114
  Transmission Date: 20110831
  Serious: Yes (Disabling, Other)
  Sender: FDA-Public Use
  Company Number: US-PFIZER INC-US-WYE-H10349409

PATIENT
  Sex: Female

DRUGS (6)
  1. PRISTIQ [Suspect]
     Dosage: 150 MG, 1X/DAY
     Route: 048
     Dates: start: 20090212, end: 20090224
  2. ABILIFY [Concomitant]
     Dosage: UNK
     Route: 065
     Dates: start: 20090801
  3. EFFEXOR [Concomitant]
     Indication: HOT FLUSH
     Dosage: 300 MG, DAILY
     Route: 048
     Dates: start: 20090127
  4. PRISTIQ [Suspect]
     Indication: DEPRESSION
     Dosage: 50 MG, 1X/DAY
     Route: 048
     Dates: start: 20090128, end: 20090201
  5. PRISTIQ [Suspect]
     Dosage: 100 MG, 1X/DAY
     Route: 048
     Dates: start: 20090201, end: 20090224
  6. REMERON [Concomitant]
     Indication: WEIGHT INCREASED
     Dosage: UNK
     Route: 065
     Dates: start: 20090401

REACTIONS (30)
  - BIPOLAR I DISORDER [None]
  - PANIC ATTACK [None]
  - ANXIETY [None]
  - CONDITION AGGRAVATED [None]
  - ORAL PAIN [None]
  - HOT FLUSH [None]
  - MAJOR DEPRESSION [None]
  - INSOMNIA [None]
  - AGGRESSION [None]
  - ALTERED STATE OF CONSCIOUSNESS [None]
  - OROPHARYNGEAL PAIN [None]
  - PARANOIA [None]
  - MENTAL STATUS CHANGES [None]
  - DYSPEPSIA [None]
  - SCHIZOAFFECTIVE DISORDER [None]
  - HYPERACUSIS [None]
  - WEIGHT INCREASED [None]
  - GLOSSODYNIA [None]
  - URINE OUTPUT DECREASED [None]
  - DRY MOUTH [None]
  - ANGER [None]
  - BIPOLAR II DISORDER [None]
  - STRESS [None]
  - CRYING [None]
  - PSYCHOMOTOR HYPERACTIVITY [None]
  - TRISMUS [None]
  - IMPULSIVE BEHAVIOUR [None]
  - IMPAIRED WORK ABILITY [None]
  - POST-TRAUMATIC STRESS DISORDER [None]
  - AGITATION [None]
